FAERS Safety Report 14376255 (Version 2)
Quarter: 2018Q1

REPORT INFORMATION
  Report Type: Spontaneous
  Country: US (occurrence: US)
  Receive Date: 20180111
  Receipt Date: 20180216
  Transmission Date: 20180509
  Serious: No
  Sender: FDA-Public Use
  Company Number: US-009507513-1801USA001634

PATIENT
  Age: 22 Year
  Sex: Female
  Weight: 51.25 kg

DRUGS (3)
  1. NEXPLANON [Suspect]
     Active Substance: ETONOGESTREL
     Indication: CONTRACEPTION
     Dosage: 68 MG, ONCE (3 YEAR DURATION)
     Route: 059
     Dates: start: 20161121
  2. DOXYCYCLINE. [Concomitant]
     Active Substance: DOXYCYCLINE
     Indication: ACNE
     Dosage: 100 MG, UNK
     Route: 048
     Dates: start: 20171120, end: 20171203
  3. DOXYCYCLINE. [Concomitant]
     Active Substance: DOXYCYCLINE
     Indication: HAEMORRHAGE

REACTIONS (3)
  - Menorrhagia [Recovered/Resolved]
  - Menstruation irregular [Unknown]
  - Acne [Unknown]

NARRATIVE: CASE EVENT DATE: 20170103
